FAERS Safety Report 10961157 (Version 1)
Quarter: 2015Q1

REPORT INFORMATION
  Report Type: Spontaneous
  Country: CH (occurrence: CH)
  Receive Date: 20150327
  Receipt Date: 20150327
  Transmission Date: 20150721
  Serious: Yes (Hospitalization)
  Sender: FDA-Public Use
  Company Number: PHHY2015CH034929

PATIENT
  Age: 79 Year
  Sex: Female

DRUGS (1)
  1. METHOTREXATE (METHOTREXATE SODIUM) [Suspect]
     Active Substance: METHOTREXATE SODIUM
     Indication: RHEUMATOID ARTHRITIS
     Dosage: 10 MG, QD
     Route: 048
     Dates: start: 20141230, end: 20150106

REACTIONS (8)
  - Accidental overdose [Recovering/Resolving]
  - Colitis [Recovering/Resolving]
  - Colonic pseudo-obstruction [Recovered/Resolved]
  - Lung disorder [Unknown]
  - C-reactive protein increased [Unknown]
  - Haematemesis [Recovered/Resolved]
  - Bicytopenia [Recovering/Resolving]
  - Stomatitis [Recovering/Resolving]

NARRATIVE: CASE EVENT DATE: 20141230
